FAERS Safety Report 9719945 (Version 2)
Quarter: 2014Q1

REPORT INFORMATION
  Report Type: Spontaneous
  Country: US (occurrence: US)
  Receive Date: 20131128
  Receipt Date: 20140203
  Transmission Date: 20141002
  Serious: Yes (Other)
  Sender: FDA-Public Use
  Company Number: US-JNJFOC-20131112061

PATIENT
  Age: 48 Year
  Sex: Female
  Weight: 80.74 kg

DRUGS (3)
  1. INVEGA [Suspect]
     Indication: SCHIZOAFFECTIVE DISORDER
     Route: 048
     Dates: start: 201210, end: 20131110
  2. CYMBALTA [Concomitant]
     Indication: DEPRESSION
     Route: 065
     Dates: start: 201211
  3. COGENTIN [Concomitant]
     Indication: EXTRAPYRAMIDAL DISORDER
     Route: 065
     Dates: start: 20130905, end: 20131110

REACTIONS (1)
  - Tardive dyskinesia [Recovering/Resolving]
